FAERS Safety Report 9602155 (Version 3)
Quarter: 2013Q4

REPORT INFORMATION
  Report Type: Spontaneous
  Country: CN (occurrence: None)
  Receive Date: 20131002
  Receipt Date: 20131016
  Transmission Date: 20140711
  Serious: Yes (Life-Threatening, Hospitalization)
  Sender: FDA-Public Use
  Company Number: 2013P1019750

PATIENT
  Age: 53 Year
  Sex: Female
  Weight: 55 kg

DRUGS (1)
  1. ZINACEF [Suspect]
     Indication: INFECTION PROPHYLAXIS
     Route: 042
     Dates: start: 20130917, end: 20130917

REACTIONS (6)
  - Cardiac arrest [None]
  - Blood pressure decreased [None]
  - Apparent life threatening event [None]
  - Heart rate decreased [None]
  - Chest discomfort [None]
  - Oropharyngeal discomfort [None]
